FAERS Safety Report 8583232-0 (Version None)
Quarter: 2012Q3

REPORT INFORMATION
  Report Type: 
  Country: None (occurrence: None)
  Receive Date: 20120727
  Receipt Date: 20120709
  Transmission Date: 20120928
  Serious: Yes (Other)
  Sender: FDA-Public Use
  Company Number: JPI-P-014323

PATIENT
  Age: 11 Year
  Sex: Male

DRUGS (11)
  1. MAZINDOL [Concomitant]
  2. XYREM [Suspect]
     Indication: CATAPLEXY
     Dosage: SEE IMAGE
     Route: 048
     Dates: start: 20110306, end: 20110306
  3. XYREM [Suspect]
     Indication: CATAPLEXY
     Dosage: SEE IMAGE
     Route: 048
     Dates: start: 20110316, end: 20110322
  4. XYREM [Suspect]
     Indication: CATAPLEXY
     Dosage: SEE IMAGE
     Route: 048
     Dates: start: 20110324, end: 20120131
  5. XYREM [Suspect]
     Indication: CATAPLEXY
     Dosage: SEE IMAGE
     Route: 048
     Dates: start: 20120402, end: 20120508
  6. XYREM [Suspect]
     Indication: CATAPLEXY
     Dosage: SEE IMAGE
     Route: 048
     Dates: start: 20110215, end: 20110303
  7. XYREM [Suspect]
     Indication: CATAPLEXY
     Dosage: SEE IMAGE
     Route: 048
     Dates: start: 20110304, end: 20110305
  8. XYREM [Suspect]
     Indication: CATAPLEXY
     Dosage: SEE IMAGE
     Route: 048
     Dates: start: 20120511
  9. XYREM [Suspect]
     Indication: CATAPLEXY
     Dosage: SEE IMAGE
     Route: 048
     Dates: start: 20120201, end: 20120401
  10. XYREM [Suspect]
     Indication: CATAPLEXY
     Dosage: SEE IMAGE
     Route: 048
     Dates: start: 20110307, end: 20110315
  11. VENLAFAXINE HYDROCHOLRIDE [Concomitant]

REACTIONS (23)
  - BULIMIA NERVOSA [None]
  - INSOMNIA [None]
  - SOMNOLENCE [None]
  - HUNGER [None]
  - URTICARIA [None]
  - PAIN IN EXTREMITY [None]
  - NAUSEA [None]
  - ABDOMINAL PAIN [None]
  - HEADACHE [None]
  - VOMITING [None]
  - SUICIDAL IDEATION [None]
  - RESTLESSNESS [None]
  - CARDIAC MURMUR [None]
  - NIGHTMARE [None]
  - GASTROINTESTINAL DISORDER [None]
  - CRYING [None]
  - FATIGUE [None]
  - NERVOUSNESS [None]
  - DEPRESSION [None]
  - AORTIC VALVE SCLEROSIS [None]
  - AGITATION [None]
  - AGGRESSION [None]
  - TREATMENT NONCOMPLIANCE [None]
